FAERS Safety Report 6985306-4 (Version None)
Quarter: 2010Q3

REPORT INFORMATION
  Report Type: 
  Country: None (occurrence: None)
  Receive Date: 20100915
  Receipt Date: 20100827
  Transmission Date: 20110219
  Serious: No
  Sender: FDA-Public Use
  Company Number: US-PFIZER INC-2010108423

PATIENT
  Age: 34 Year
  Sex: Male

DRUGS (2)
  1. LYRICA [Suspect]
     Indication: FIBROMYALGIA
     Dosage: 350 MG, 1X/DAY
     Route: 048
  2. VICODIN [Concomitant]
     Indication: PAIN
     Dosage: UNK

REACTIONS (3)
  - FEELING ABNORMAL [None]
  - MOOD ALTERED [None]
  - WEIGHT INCREASED [None]
